FAERS Safety Report 6653758-5 (Version None)
Quarter: 2010Q1

REPORT INFORMATION
  Report Type: 
  Country: None (occurrence: None)
  Receive Date: 20100326
  Receipt Date: 20100322
  Transmission Date: 20100710
  Serious: Yes (Other)
  Sender: FDA-Public Use
  Company Number: A0770937A

PATIENT
  Age: 49 Year
  Sex: Female

DRUGS (3)
  1. VALTREX [Suspect]
     Indication: GENITAL HERPES
     Dosage: 500MG PER DAY
     Route: 048
  2. SYNTHROID [Concomitant]
  3. VITAMIN TAB [Concomitant]

REACTIONS (11)
  - DISSOCIATION [None]
  - DIZZINESS [None]
  - DYSKINESIA [None]
  - HEAD TITUBATION [None]
  - HEADACHE [None]
  - MENTAL DISORDER [None]
  - NAUSEA [None]
  - PERONEAL NERVE PALSY [None]
  - PHOTOSENSITIVITY REACTION [None]
  - TARDIVE DYSKINESIA [None]
  - TREMOR [None]
